FAERS Safety Report 8393635 (Version 4)
Quarter: 2012Q4

REPORT INFORMATION
  Report Type: 
  Country: JP (occurrence: JP)
  Receive Date: 20120207
  Receipt Date: 20120912
  Transmission Date: 20130627
  Serious: Yes (Hospitalization, Other)
  Sender: FDA-Public Use
  Company Number: JP-JNJFOC-20111204980

PATIENT
  Age: 64 Year
  Sex: Female
  Weight: 63 kg

DRUGS (4)
  1. REMICADE [Suspect]
     Indication: PSORIATIC ARTHROPATHY
     Route: 042
     Dates: start: 20111019
  2. REMICADE [Suspect]
     Indication: PSORIATIC ARTHROPATHY
     Route: 042
     Dates: start: 20110921
  3. REMICADE [Suspect]
     Indication: PSORIATIC ARTHROPATHY
     Route: 042
     Dates: start: 20110907
  4. RHEUMATREX [Suspect]
     Indication: PSORIASIS
     Route: 048
     Dates: start: 20110907, end: 20111107

REACTIONS (3)
  - Vertigo positional [Recovering/Resolving]
  - Palpitations [Recovered/Resolved]
  - Pneumonia [Recovering/Resolving]
